FAERS Safety Report 20213503 (Version 3)
Quarter: 2024Q2

REPORT INFORMATION
  Report Type: Spontaneous
  Country: US (occurrence: US)
  Receive Date: 20211221
  Receipt Date: 20240419
  Transmission Date: 20240717
  Serious: Yes (Other)
  Sender: FDA-Public Use
  Company Number: US-PFIZER INC-2021268170

PATIENT
  Age: 71 Year
  Sex: Female
  Weight: 108.85 kg

DRUGS (4)
  1. VYNDAMAX [Suspect]
     Active Substance: TAFAMIDIS
     Indication: Amyloidosis
     Dosage: 61 MG
  2. VYNDAMAX [Suspect]
     Active Substance: TAFAMIDIS
     Indication: Cardiac failure
     Dosage: UNK, 1X/DAY (POSSIBLY 60MG)
  3. VYNDAMAX [Suspect]
     Active Substance: TAFAMIDIS
     Dosage: 61 MG, 1X/DAY
  4. METOLAZONE [Concomitant]
     Active Substance: METOLAZONE
     Dosage: HAS INCREASED HER METOLAZONE

REACTIONS (12)
  - Carotid artery disease [Unknown]
  - Obesity [Unknown]
  - Obstructive sleep apnoea syndrome [Unknown]
  - Abdominal distension [Unknown]
  - Dyspnoea [Unknown]
  - Weight decreased [Unknown]
  - Dizziness [Not Recovered/Not Resolved]
  - Migraine [Unknown]
  - Chest pain [Recovered/Resolved]
  - Nausea [Unknown]
  - Headache [Unknown]
  - Abdominal discomfort [Unknown]

NARRATIVE: CASE EVENT DATE: 20210101
